FAERS Safety Report 6436898-5 (Version None)
Quarter: 2009Q4

REPORT INFORMATION
  Report Type: 
  Country: None (occurrence: None)
  Receive Date: 20091109
  Receipt Date: 20091103
  Transmission Date: 20100525
  Serious: Yes (Hospitalization)
  Sender: FDA-Public Use
  Company Number: WAES 0906USA04125

PATIENT
  Age: 74 Year
  Sex: Female
  Weight: 69.8539 kg

DRUGS (11)
  1. CAP VORINOSTAT 400 MG [Suspect]
     Indication: MULTIPLE MYELOMA
     Dosage: 400 MG/DAILY/PO ; 400 MG/DAILY/PO
     Route: 048
     Dates: start: 20090522, end: 20090604
  2. CAP VORINOSTAT 400 MG [Suspect]
     Indication: MULTIPLE MYELOMA
     Dosage: 400 MG/DAILY/PO ; 400 MG/DAILY/PO
     Route: 048
     Dates: start: 20090612, end: 20090618
  3. CAP LENALIDOMIE 25 MG [Suspect]
     Dosage: 25 MG/DAILY/PO
     Route: 048
     Dates: start: 20090529, end: 20090618
  4. TAB DEXAMETHASONE 40 MG [Suspect]
     Dosage: 40 MG/DAILY/PO ; 40 MG DAILY/PO ; 40 MG/DAILY/PO
     Route: 048
     Dates: start: 20090529, end: 20090529
  5. TAB DEXAMETHASONE 40 MG [Suspect]
     Dosage: 40 MG/DAILY/PO ; 40 MG DAILY/PO ; 40 MG/DAILY/PO
     Route: 048
     Dates: start: 20090605, end: 20090605
  6. TAB DEXAMETHASONE 40 MG [Suspect]
     Dosage: 40 MG/DAILY/PO ; 40 MG DAILY/PO ; 40 MG/DAILY/PO
     Route: 048
     Dates: start: 20090612, end: 20090612
  7. PROCRIT [Concomitant]
  8. PROVENTIL [Concomitant]
  9. ASPIRIN [Concomitant]
  10. INSULIN [Concomitant]
  11. METOPROLOL TARTRATE [Concomitant]

REACTIONS (9)
  - ANAEMIA [None]
  - MEAN CELL HAEMOGLOBIN INCREASED [None]
  - MEAN CELL VOLUME INCREASED [None]
  - NEUTROPENIA [None]
  - PYREXIA [None]
  - RED BLOOD CELL ANISOCYTES PRESENT [None]
  - RED BLOOD CELL MACROCYTES PRESENT [None]
  - THROMBOCYTOPENIA [None]
  - WHITE BLOOD CELL COUNT DECREASED [None]
